FAERS Safety Report 19488393 (Version 2)
Quarter: 2024Q1

REPORT INFORMATION
  Report Type: Spontaneous
  Country: GB (occurrence: None)
  Receive Date: 20210702
  Receipt Date: 20240208
  Transmission Date: 20240410
  Serious: Yes (Other)
  Sender: FDA-Public Use
  Company Number: 2021A558552

PATIENT
  Age: 80 Year
  Sex: Female

DRUGS (11)
  1. ESOMEPRAZOLE [Suspect]
     Active Substance: ESOMEPRAZOLE
     Indication: Hiatus hernia
     Dates: start: 20210515, end: 20210518
  2. CALCIUM CARBONATE\CHOLECALCIFEROL [Concomitant]
     Active Substance: CALCIUM CARBONATE\CHOLECALCIFEROL
     Indication: Ill-defined disorder
     Route: 065
  3. AMLODIPINE [Concomitant]
     Active Substance: AMLODIPINE BESYLATE
     Indication: Ill-defined disorder
  4. ATENOLOL [Concomitant]
     Active Substance: ATENOLOL
     Indication: Ill-defined disorder
  5. BISACODYL [Concomitant]
     Active Substance: BISACODYL
     Indication: Ill-defined disorder
  6. POTASSIUM BICARBONATE\SODIUM ALGINATE [Concomitant]
     Active Substance: POTASSIUM BICARBONATE\SODIUM ALGINATE
     Indication: Ill-defined disorder
  7. IRBESARTAN [Concomitant]
     Active Substance: IRBESARTAN
     Indication: Ill-defined disorder
  8. LACTULOSE [Concomitant]
     Active Substance: LACTULOSE
     Indication: Ill-defined disorder
  9. MIRABEGRON [Concomitant]
     Active Substance: MIRABEGRON
     Indication: Ill-defined disorder
  10. ACETAMINOPHEN [Concomitant]
     Active Substance: ACETAMINOPHEN
     Indication: Ill-defined disorder
  11. ROSUVASTATIN [Concomitant]
     Active Substance: ROSUVASTATIN
     Indication: Ill-defined disorder

REACTIONS (3)
  - Chromaturia [Recovered/Resolved]
  - Abdominal pain [Recovered/Resolved]
  - Illness [Recovering/Resolving]

NARRATIVE: CASE EVENT DATE: 20210516
